FAERS Safety Report 9738303 (Version 1)
Quarter: 2013Q4

REPORT INFORMATION
  Report Type: Spontaneous
  Country: US (occurrence: US)
  Receive Date: 20131208
  Receipt Date: 20131208
  Transmission Date: 20140711
  Serious: No
  Sender: FDA-Public Use
  Company Number: US-SANOFI-AVENTIS-2013SA048901

PATIENT
  Age: 52 Year
  Sex: Female

DRUGS (1)
  1. FERRLECIT [Suspect]
     Indication: IRON DEFICIENCY
     Dosage: 125MG IN 100ML OF NORMAL SALINE
     Dates: start: 20130510

REACTIONS (2)
  - Extravasation [Not Recovered/Not Resolved]
  - Swelling [Not Recovered/Not Resolved]
